FAERS Safety Report 9303660 (Version 1)
Quarter: 2013Q2

REPORT INFORMATION
  Report Type: Report from Study
  Country: US (occurrence: US)
  Receive Date: 20130522
  Receipt Date: 20130522
  Transmission Date: 20140414
  Serious: Yes (Hospitalization, Other)
  Sender: FDA-Public Use
  Company Number: US-ABBOTT-13P-163-1090895-00

PATIENT
  Age: 48 Year
  Sex: Male
  Weight: 99.88 kg

DRUGS (7)
  1. HUMIRA [Suspect]
     Indication: PSORIASIS
     Dates: end: 20110501
  2. HUMIRA [Suspect]
     Indication: PSORIATIC ARTHROPATHY
  3. HUMIRA [Suspect]
     Indication: PSORIASIS
     Dates: start: 20130503
  4. HUMIRA [Suspect]
     Indication: PSORIATIC ARTHROPATHY
  5. NEFAZODONE [Concomitant]
     Indication: DEPRESSION
  6. TRAMADOL [Concomitant]
     Indication: PAIN
  7. MELOXICAM [Concomitant]
     Indication: INFLAMMATION

REACTIONS (9)
  - Intestinal perforation [Recovered/Resolved]
  - Road traffic accident [Recovered/Resolved]
  - Clavicle fracture [Recovered/Resolved]
  - Scapula fracture [Recovered/Resolved]
  - Rib fracture [Recovered/Resolved]
  - Spinal fracture [Recovered/Resolved]
  - Pneumothorax [Recovered/Resolved]
  - Dyspnoea [Recovered/Resolved]
  - Muscular weakness [Not Recovered/Not Resolved]
